FAERS Safety Report 5839570-5 (Version None)
Quarter: 2008Q3

REPORT INFORMATION
  Report Type: 
  Country: None (occurrence: None)
  Receive Date: 20080811
  Receipt Date: 20080619
  Transmission Date: 20090109
  Serious: No
  Sender: FDA-Public Use
  Company Number: A0731983A

PATIENT
  Age: 28 Year
  Sex: Female
  Weight: 72.7 kg

DRUGS (2)
  1. TREXIMET [Suspect]
     Indication: MIGRAINE
     Dosage: 1TAB SINGLE DOSE
     Route: 048
     Dates: start: 20080604, end: 20080604
  2. NO CONCURRENT MEDICATIONS [Concomitant]

REACTIONS (1)
  - PARAESTHESIA [None]
